FAERS Safety Report 7394240-X (Version None)
Quarter: 2011Q2

REPORT INFORMATION
  Report Type: 
  Country: None (occurrence: None)
  Receive Date: 20110405
  Receipt Date: 20110314
  Transmission Date: 20111010
  Serious: No
  Sender: FDA-Public Use
  Company Number: US-B.I. PHARMACEUTICALS,INC./RIDGEFIELD-2011-BP-08373BP

PATIENT
  Age: 72 Year
  Sex: Female

DRUGS (3)
  1. SPIRIVA [Suspect]
     Indication: EMPHYSEMA
     Dosage: 18 MCG
     Route: 055
     Dates: start: 20101001
  2. TRANDATE [Concomitant]
     Indication: HYPERTENSION
     Dosage: 100 MG
     Route: 048
  3. DIOVAN [Concomitant]
     Indication: HYPERTENSION
     Dosage: 160 MG
     Route: 048
     Dates: start: 20050101

REACTIONS (3)
  - SINUS HEADACHE [None]
  - SINUS CONGESTION [None]
  - PYREXIA [None]
